FAERS Safety Report 4678233-9 (Version None)
Quarter: 2005Q2

REPORT INFORMATION
  Report Type: 
  Country: None (occurrence: None)
  Receive Date: 20050527
  Receipt Date: 20050516
  Transmission Date: 20051028
  Serious: Yes (Other)
  Sender: FDA-Public Use
  Company Number: 2005075973

PATIENT
  Age: 40 Year
  Sex: Female
  Weight: 98 kg

DRUGS (10)
  1. ZOLOFT [Suspect]
     Indication: DEPRESSION
     Dosage: 50 MG (50 MG, 1 IN 1 D), ORAL
     Route: 048
     Dates: start: 19980101
  2. CELEBREX [Suspect]
     Indication: PAIN
     Dosage: 200 MG (200 MG, 1 IN 1 D), ORAL
     Route: 048
     Dates: start: 19990101
  3. LIBRAX [Concomitant]
  4. XANAX [Concomitant]
  5. NEXIUM [Concomitant]
  6. TOPROL-XL [Concomitant]
  7. PLAQUENIL [Concomitant]
  8. PREMARIN [Concomitant]
  9. HYDROCODONE [Concomitant]
  10. ALL OTHER THERAPEUTIC PRODUCTS [Concomitant]

REACTIONS (13)
  - ANAEMIA [None]
  - DIFFICULTY IN WALKING [None]
  - ECONOMIC PROBLEM [None]
  - FIBROMYALGIA [None]
  - MIGRAINE [None]
  - OSTEOARTHRITIS [None]
  - PAIN [None]
  - POST PROCEDURAL PAIN [None]
  - SPEECH DISORDER [None]
  - SURGERY [None]
  - SYSTEMIC LUPUS ERYTHEMATOSUS [None]
  - TREATMENT NONCOMPLIANCE [None]
  - WEIGHT INCREASED [None]
